FAERS Safety Report 11344096 (Version 1)
Quarter: 2015Q3

REPORT INFORMATION
  Report Type: Spontaneous
  Country: GB (occurrence: GB)
  Receive Date: 20150806
  Receipt Date: 20150806
  Transmission Date: 20151125
  Serious: Yes (Hospitalization)
  Sender: FDA-Public Use
  Company Number: GB-ACTAVIS-2015-16011

PATIENT
  Sex: Female

DRUGS (2)
  1. VINORELBINE [Suspect]
     Active Substance: VINORELBINE\VINORELBINE TARTRATE
     Indication: PRODUCT USED FOR UNKNOWN INDICATION
     Dosage: UNK
     Route: 065
  2. HERCEPTIN [Suspect]
     Active Substance: TRASTUZUMAB
     Indication: PRODUCT USED FOR UNKNOWN INDICATION
     Dosage: UNK
     Route: 058

REACTIONS (7)
  - Neutropenia [Unknown]
  - Alopecia [Unknown]
  - Pyrexia [Unknown]
  - Constipation [Unknown]
  - Abdominal pain [Unknown]
  - Decreased appetite [Unknown]
  - Pain [Unknown]
